FAERS Safety Report 18695809 (Version 1)
Quarter: 2021Q1

REPORT INFORMATION
  Report Type: Spontaneous
  Country: US (occurrence: US)
  Receive Date: 20210104
  Receipt Date: 20210104
  Transmission Date: 20210419
  Serious: Yes (Hospitalization)
  Sender: FDA-Public Use
  Company Number: US-MYLANLABS-2020M1106438

PATIENT
  Age: 62 Year
  Sex: Male

DRUGS (1)
  1. MELOXICAM. [Suspect]
     Active Substance: MELOXICAM
     Indication: BACK PAIN
     Dosage: TAKING MELOXICAM DAILY...
     Route: 065

REACTIONS (5)
  - Gastrointestinal disorder [Unknown]
  - Gastric mucosa erythema [Unknown]
  - Weight decreased [Unknown]
  - Barrett^s oesophagus [Unknown]
  - Lower gastrointestinal haemorrhage [Unknown]
